FAERS Safety Report 11164423 (Version 5)
Quarter: 2015Q3

REPORT INFORMATION
  Report Type: Report from Study
  Country: FR (occurrence: FR)
  Receive Date: 20150604
  Receipt Date: 20150730
  Transmission Date: 20151125
  Serious: Yes (Hospitalization)
  Sender: FDA-Public Use
  Company Number: FR-GLAXOSMITHKLINE INC.-FR2015055668

PATIENT
  Age: 55 Year
  Sex: Female
  Weight: 60 kg

DRUGS (4)
  1. GSK2256098 [Suspect]
     Active Substance: INVESTIGATIONAL PRODUCT
     Dosage: 250 MG, QD
     Route: 048
     Dates: start: 20150327, end: 20150424
  2. GSK2256098 [Suspect]
     Active Substance: INVESTIGATIONAL PRODUCT
     Dosage: 125 MG, QD
     Route: 048
     Dates: start: 20150321, end: 20150321
  3. GSK2256098 [Suspect]
     Active Substance: INVESTIGATIONAL PRODUCT
     Indication: NEOPLASM
     Dosage: 250 MG, BID
     Route: 048
     Dates: start: 20150305, end: 20150320
  4. TRAMETINIB [Suspect]
     Active Substance: TRAMETINIB
     Indication: NEOPLASM
     Dosage: 0.5 MG, QD
     Route: 048
     Dates: start: 20150305, end: 20150424

REACTIONS (1)
  - Pneumonitis [Recovered/Resolved]

NARRATIVE: CASE EVENT DATE: 20150422
